FAERS Safety Report 7293576-0 (Version None)
Quarter: 2011Q1

REPORT INFORMATION
  Report Type: 
  Country: None (occurrence: None)
  Receive Date: 20110204
  Receipt Date: 20110120
  Transmission Date: 20110831
  Serious: Yes (Hospitalization, Other)
  Sender: FDA-Public Use
  Company Number: 2008S1011431

PATIENT
  Age: 65 Year
  Sex: Male
  Weight: 97.0698 kg

DRUGS (1)
  1. SODIUM PHOSPHATE DIBASIC/SODIUM PHOSPHATE MONOBASIC (ANHYDRATE) [Suspect]
     Indication: COLECTOMY
     Dosage: ; PO
     Route: 048
     Dates: start: 20061109, end: 20061110

REACTIONS (14)
  - POST PROCEDURAL INFECTION [None]
  - HAEMORRHAGE [None]
  - WOUND INFECTION [None]
  - HAEMODIALYSIS [None]
  - VOMITING [None]
  - DIZZINESS [None]
  - RENAL FAILURE CHRONIC [None]
  - RENAL TUBULAR NECROSIS [None]
  - ASTHENIA [None]
  - MALAISE [None]
  - ANAEMIA [None]
  - SEPSIS [None]
  - RENAL FAILURE ACUTE [None]
  - NAUSEA [None]
